FAERS Safety Report 20317200 (Version 1)
Quarter: 2022Q1

REPORT INFORMATION
  Report Type: Spontaneous
  Country: DE (occurrence: DE)
  Receive Date: 20220110
  Receipt Date: 20220110
  Transmission Date: 20220423
  Serious: Yes (Hospitalization, Other)
  Sender: FDA-Public Use
  Company Number: DE-TEVA-2020-DE-1197853

PATIENT
  Sex: Male

DRUGS (9)
  1. DOCETAXEL [Suspect]
     Active Substance: DOCETAXEL
     Indication: Hormone-refractory prostate cancer
     Dosage: UNK UNK, 6 CYCLE
     Route: 065
  2. ABIRATERONE [Suspect]
     Active Substance: ABIRATERONE
     Indication: Hormone-refractory prostate cancer
     Dosage: UNK
     Route: 065
  3. SAMARIUM SM-153 LEXIDRONAM [Suspect]
     Active Substance: SAMARIUM SM-153 LEXIDRONAM
     Indication: Hormone-refractory prostate cancer
     Dosage: 2 ACTIVITIES
     Route: 065
  4. RADIUM RA-223 DICHLORIDE [Suspect]
     Active Substance: RADIUM RA-223 DICHLORIDE
     Indication: Hormone-refractory prostate cancer
     Dosage: UNK
     Route: 065
  5. VIPIVOTIDE TETRAXETAN ACTINIUM AC-225 [Suspect]
     Active Substance: VIPIVOTIDE TETRAXETAN ACTINIUM AC-225
     Indication: Hormone-refractory prostate cancer
     Dosage: (37 KBQ/KG BODY WEIGHT) THE TANDEM THERAPY WAS INFUSED IV OVER
     Route: 041
  6. ENZALUTAMIDE [Suspect]
     Active Substance: ENZALUTAMIDE
     Indication: Hormone-refractory prostate cancer
     Dosage: UNK
     Route: 065
  7. LUTETIUM LU-177 VIPIVOTIDE TETRAXETAN [Suspect]
     Active Substance: LUTETIUM LU-177 VIPIVOTIDE TETRAXETAN
     Indication: Hormone-refractory prostate cancer
     Dosage: 25 GIGABECQUEREL, CYCLE(4 CYCLES)
     Route: 065
  8. LUTETIUM LU-177 VIPIVOTIDE TETRAXETAN [Suspect]
     Active Substance: LUTETIUM LU-177 VIPIVOTIDE TETRAXETAN
     Dosage: 6.7 GIGABECQUEREL(TANDEM PROSTATE-SPECIFIC MEMBRANE ANTIGEN-TARGETED
     Route: 041
  9. SODIUM CHLORIDE [Concomitant]
     Active Substance: SODIUM CHLORIDE
     Dosage: 1 LITER
     Route: 042

REACTIONS (2)
  - Anaemia [Recovering/Resolving]
  - Treatment failure [Unknown]
